FAERS Safety Report 4432829-8 (Version None)
Quarter: 2004Q3

REPORT INFORMATION
  Report Type: 
  Country: None (occurrence: None)
  Receive Date: 20040823
  Receipt Date: 20040805
  Transmission Date: 20050211
  Serious: Yes (Hospitalization)
  Sender: FDA-Public Use
  Company Number: 208518

PATIENT
  Age: 55 Year

DRUGS (3)
  1. BEVACIZUMAB (BEVACIZUMAB) PWDR + SOLVENT,INFUSION SOLN,100MG [Suspect]
     Indication: NON-SMALL CELL LUNG CANCER
     Dosage: 15MG/KG,Q3W,INTRAVENOUS
     Route: 042
     Dates: start: 20040408, end: 20040518
  2. PACLITAXEL [Suspect]
     Indication: NON-SMALL CELL LUNG CANCER
     Dosage: 200 MG,Q3W,INTRAVENOUS
     Route: 042
     Dates: start: 20040408, end: 20040608
  3. CARBOPLATIN [Suspect]
     Indication: NON-SMALL CELL LUNG CANCER
     Dosage: 6 AUC,Q3W,INTRAVENOUS
     Route: 042
     Dates: start: 20040408, end: 20040608

REACTIONS (4)
  - HYPOXIA [None]
  - INFECTION [None]
  - PNEUMONIA BACTERIAL [None]
  - PROTEINURIA [None]
